FAERS Safety Report 5111728-2 (Version None)
Quarter: 2006Q3

REPORT INFORMATION
  Report Type: 
  Country: None (occurrence: None)
  Receive Date: 20060920
  Receipt Date: 20060920
  Transmission Date: 20061208
  Serious: Yes (Other)
  Sender: FDA-Public Use
  Company Number: None

PATIENT
  Age: 53 Year
  Sex: Female
  Weight: 58.0604 kg

DRUGS (1)
  1. NEURONTIN [Suspect]
     Indication: PAIN MANAGEMENT
     Dosage: 2 CAPSULES 3 TIMES DAILY

REACTIONS (4)
  - EXTRASYSTOLES [None]
  - HEART RATE INCREASED [None]
  - MIDDLE INSOMNIA [None]
  - PAIN [None]
